FAERS Safety Report 16432955 (Version 1)
Quarter: 2019Q2

REPORT INFORMATION
  Report Type: Spontaneous
  Country: US (occurrence: US)
  Receive Date: 20190614
  Receipt Date: 20190614
  Transmission Date: 20190711
  Serious: No
  Sender: FDA-Public Use
  Company Number: US-JNJFOC-20190610682

PATIENT
  Age: 72 Year
  Sex: Female
  Weight: 113.4 kg

DRUGS (3)
  1. XARELTO [Suspect]
     Active Substance: RIVAROXABAN
     Indication: THROMBOSIS
     Dosage: NDC: 5045857990??SERIAL NUMBER: 3045857990??PRESCRIPTION NUMBER: 7765963
     Route: 048
     Dates: start: 2018, end: 20190429
  2. DYAZIDE [Concomitant]
     Active Substance: HYDROCHLOROTHIAZIDE\TRIAMTERENE
     Indication: HYPERTENSION
     Route: 065
     Dates: start: 2008
  3. XARELTO [Suspect]
     Active Substance: RIVAROXABAN
     Indication: THROMBOSIS
     Dosage: NDC: 5045857830??SERIAL NUMBER: 5702B75CC??PRESCRIPTION NUMBER: 8093799
     Route: 048
     Dates: start: 20190430

REACTIONS (3)
  - Urticaria [Not Recovered/Not Resolved]
  - Gingival bleeding [Recovered/Resolved]
  - Rash [Not Recovered/Not Resolved]

NARRATIVE: CASE EVENT DATE: 2019
